FAERS Safety Report 7060105-6 (Version None)
Quarter: 2010Q4

REPORT INFORMATION
  Report Type: 
  Country: None (occurrence: None)
  Receive Date: 20101025
  Receipt Date: 20101015
  Transmission Date: 20110411
  Serious: Yes (Other)
  Sender: FDA-Public Use
  Company Number: GXKR2010US11726

PATIENT
  Age: 81 Year
  Sex: Female

DRUGS (9)
  1. PREDNISONE [Suspect]
     Indication: LEUKAEMIA PLASMACYTIC
     Dosage: 60 MG/M2 ON DAYS 1 TO 4
     Route: 065
  2. MELPHALAN HYDROCHLORIDE [Suspect]
     Indication: LEUKAEMIA PLASMACYTIC
     Dosage: 9 MG/M2 OF BODY SURFACE AREA ON DAYS 1 TO 4
     Route: 065
  3. MELPHALAN HYDROCHLORIDE [Suspect]
     Dosage: REDUCED BY 25% OF THE INITIAL DOSE
     Route: 065
  4. BORTEZOMIB [Suspect]
     Indication: LEUKAEMIA PLASMACYTIC
     Dosage: 1.3 MG/M2 ON DAYS 1, 4, 8, 11, 22, 25, 29, 32 IN CYCLES 1-4, ON DAYS 1, 8, 22, 29 IN CYCLES 5-9
     Route: 042
  5. BORTEZOMIB [Suspect]
     Dosage: 0.7 MG/M2 ON DAYS 1, 4, 8, 11, 22, 25, 29, 32 IN THE SECOND CYCLE
     Route: 042
  6. BORTEZOMIB [Suspect]
     Dosage: 1.0 MG/M2 ON DAYS 1, 4, 8, 11, 22, 25, 29, 32 IN CYCLES 3-4, ON DAYS 1, 8, 22, 29 IN CYCLES 5-8
     Route: 042
  7. BORTEZOMIB [Suspect]
     Dosage: 1.5 MG/M2 EVERY OTHER WEEK
     Route: 042
  8. ENOXAPARIN SODIUM [Concomitant]
     Dosage: 1 MG/KG, QD
     Route: 058
  9. CALCIUM [Concomitant]
     Route: 065

REACTIONS (2)
  - BONE MARROW FAILURE [None]
  - RASH MACULO-PAPULAR [None]
